FAERS Safety Report 16713189 (Version 1)
Quarter: 2019Q3

REPORT INFORMATION
  Report Type: Other
  Country: CN (occurrence: CN)
  Receive Date: 20190817
  Receipt Date: 20190817
  Transmission Date: 20191004
  Serious: Yes (Hospitalization)
  Sender: FDA-Public Use
  Company Number: CN-JIANGSU HENGRUI MEDICINE CO., LTD.-2073284

PATIENT
  Age: 37 Year
  Sex: Female
  Weight: 51.7 kg

DRUGS (3)
  1. CYCLOPHOSPHAMIDE FOR INJECTION USP, 500 MG, 1 G AND 2 G PER SINGLE-DOS [Suspect]
     Active Substance: CYCLOPHOSPHAMIDE
     Indication: CHEMOTHERAPY
     Route: 041
     Dates: start: 20190629, end: 20190629
  2. SODIUM CHLORIDE. [Suspect]
     Active Substance: SODIUM CHLORIDE
     Route: 041
     Dates: start: 20190629, end: 20190629
  3. CEFPIROME SULFATE FOR INJECTION [Suspect]
     Active Substance: CEFPIROME SULFATE
     Route: 041
     Dates: start: 20190629, end: 20190629

REACTIONS (2)
  - Insomnia [Recovering/Resolving]
  - White blood cell count decreased [Recovering/Resolving]

NARRATIVE: CASE EVENT DATE: 20190629
